FAERS Safety Report 19358308 (Version 2)
Quarter: 2021Q2

REPORT INFORMATION
  Report Type: Spontaneous
  Country: JP (occurrence: JP)
  Receive Date: 20210601
  Receipt Date: 20210623
  Transmission Date: 20210717
  Serious: Yes (Other)
  Sender: FDA-Public Use
  Company Number: JP-CELLTRION INC.-2021JP007176

PATIENT

DRUGS (11)
  1. TRASTUZUMAB (UNKNOWN) [Suspect]
     Active Substance: TRASTUZUMAB
     Dosage: 6 MG/KG (SECOND AND SUBSEQUENT DAYS) (1 COURSE, 21 DAYS)
  2. TS?1 [Suspect]
     Active Substance: GIMERACIL\OTERACIL\TEGAFUR
     Dosage: 80 MG, DAILY (1 WEEK, 1 WEEK OFF)
  3. TRASTUZUMAB (UNKNOWN) [Suspect]
     Active Substance: TRASTUZUMAB
     Dosage: 6 MG/KG
  4. OXALIPLATIN. [Suspect]
     Active Substance: OXALIPLATIN
     Indication: METASTATIC GASTRIC CANCER
     Dosage: 6 COURSES OF INTENSIVE CHEMOTHERAPY WITH S?1, OXALIPLATIN, AND TRASTUZUMAB
  5. TS?1 [Suspect]
     Active Substance: GIMERACIL\OTERACIL\TEGAFUR
     Dosage: 80 MG, DAILY (1?14 DAYS)
  6. TRASTUZUMAB (UNKNOWN) [Suspect]
     Active Substance: TRASTUZUMAB
     Indication: METASTATIC GASTRIC CANCER
     Dosage: 6 COURSES OF INTENSIVE CHEMOTHERAPY WITH S?1, OXALIPLATIN, AND TRASTUZUMAB
  7. TRASTUZUMAB (UNKNOWN) [Suspect]
     Active Substance: TRASTUZUMAB
     Dosage: 8 MG/KG (FIRST DAY) (1 COURSE, 21 DAYS)
  8. OXALIPLATIN. [Suspect]
     Active Substance: OXALIPLATIN
     Dosage: 130 MG/M2 (1ST DAY)
  9. TS?1 [Suspect]
     Active Substance: GIMERACIL\OTERACIL\TEGAFUR
     Indication: METASTATIC GASTRIC CANCER
     Dosage: 6 COURSES OF INTENSIVE CHEMOTHERAPY WITH S?1, OXALIPLATIN, AND TRASTUZUMAB
  10. TRASTUZUMAB (UNKNOWN) [Suspect]
     Active Substance: TRASTUZUMAB
     Dosage: S?1 AND TRASTUZUMAB (5 COURSES)
  11. TS?1 [Suspect]
     Active Substance: GIMERACIL\OTERACIL\TEGAFUR
     Dosage: S?1 AND TRASTUZUMAB (5 COURSES)

REACTIONS (3)
  - Neutropenia [Unknown]
  - Therapy partial responder [Recovered/Resolved]
  - Malignant neoplasm progression [Recovered/Resolved]
